FAERS Safety Report 5131867-X (Version None)
Quarter: 2006Q4

REPORT INFORMATION
  Report Type: 
  Country: None (occurrence: None)
  Receive Date: 20061016
  Receipt Date: 20060928
  Transmission Date: 20070319
  Serious: Yes (Death, Hospitalization)
  Sender: FDA-Public Use
  Company Number: 2006001772

PATIENT
  Age: 73 Year
  Sex: Female

DRUGS (2)
  1. TARCEVA [Suspect]
     Indication: NON-SMALL CELL LUNG CANCER
     Dosage: 150 MG (QD) ORAL
     Route: 048
     Dates: start: 20060816, end: 20060907
  2. PSEUDOFED-TYPE DRUG [Concomitant]

REACTIONS (10)
  - ABDOMINAL PAIN UPPER [None]
  - CARDIAC ARREST [None]
  - CARDIAC TAMPONADE [None]
  - DIARRHOEA [None]
  - DRUG INTERACTION [None]
  - HEPATORENAL FAILURE [None]
  - HEPATOTOXICITY [None]
  - NEPHROPATHY TOXIC [None]
  - PERICARDIAL EFFUSION [None]
  - VENTRICULAR TACHYCARDIA [None]
